FAERS Safety Report 6252181-5 (Version None)
Quarter: 2009Q2

REPORT INFORMATION
  Report Type: 
  Country: None (occurrence: None)
  Receive Date: 20090629
  Receipt Date: 20090618
  Transmission Date: 20091009
  Serious: Yes (Hospitalization)
  Sender: FDA-Public Use
  Company Number: 2009SP010850

PATIENT
  Age: 92 Year
  Sex: Male
  Weight: 42 kg

DRUGS (7)
  1. CLARITIN [Suspect]
     Indication: PRURITUS
     Dosage: 10 MG; PO
     Route: 048
     Dates: start: 20090508, end: 20090511
  2. SUNRYTHM (PILSICAINIDE HYDROCHLORIDE) [Suspect]
     Indication: ATRIAL FIBRILLATION
     Dosage: 50 MG; TID; PO
     Route: 048
     Dates: start: 20090408, end: 20090509
  3. SUNRYTHM (PILSICAINIDE HYDROCHLORIDE) [Suspect]
     Indication: ATRIAL FIBRILLATION
     Dosage: 50 MG; TID; PO
     Route: 048
     Dates: start: 20090511, end: 20090521
  4. ARTIST [Concomitant]
  5. LANIRAPID [Concomitant]
  6. PRELAZINE [Concomitant]
  7. LERITE [Concomitant]

REACTIONS (4)
  - ATRIOVENTRICULAR BLOCK SECOND DEGREE [None]
  - DIZZINESS [None]
  - INHIBITORY DRUG INTERACTION [None]
  - PRURITUS [None]
